FAERS Safety Report 12654473 (Version 1)
Quarter: 2016Q3

REPORT INFORMATION
  Report Type: Spontaneous
  Country: US (occurrence: None)
  Receive Date: 20160815
  Receipt Date: 20160815
  Transmission Date: 20161109
  Serious: Yes (Hospitalization, Other)
  Sender: FDA-Public Use
  Company Number: None

PATIENT
  Age: 64 Year
  Sex: Female
  Weight: 62.14 kg

DRUGS (9)
  1. PROPAFENON [Concomitant]
     Active Substance: PROPAFENONE
  2. DIGOXIN. [Concomitant]
     Active Substance: DIGOXIN
  3. IRON [Concomitant]
     Active Substance: IRON
  4. VITAMIN D2 [Concomitant]
     Active Substance: ERGOCALCIFEROL
  5. FOLIC ACID. [Concomitant]
     Active Substance: FOLIC ACID
  6. MUCINEX [Concomitant]
     Active Substance: GUAIFENESIN
  7. CARVIDILOL [Concomitant]
  8. ENOXAPARINE [Concomitant]
     Active Substance: ENOXAPARIN
  9. TARCEVA [Suspect]
     Active Substance: ERLOTINIB HYDROCHLORIDE
     Indication: LUNG NEOPLASM MALIGNANT
     Dosage: 1 TABLET(S) ONCE A DAY TAKEN BY MOUTH
     Route: 048
     Dates: start: 20160423, end: 20160723

REACTIONS (3)
  - Fall [None]
  - Hypoaesthesia [None]
  - Neuropathy peripheral [None]

NARRATIVE: CASE EVENT DATE: 20160722
